FAERS Safety Report 10023926 (Version 3)
Quarter: 2014Q2

REPORT INFORMATION
  Report Type: Spontaneous
  Country: JP (occurrence: JP)
  Receive Date: 20140320
  Receipt Date: 20140609
  Transmission Date: 20141212
  Serious: Yes (Other)
  Sender: FDA-Public Use
  Company Number: PHHY2013JP119166

PATIENT
  Age: 65 Year
  Sex: Male
  Weight: 61 kg

DRUGS (11)
  1. AFINITOR [Suspect]
     Indication: PANCREATIC NEUROENDOCRINE TUMOUR
     Dosage: 10 MG, DAILY
     Route: 048
     Dates: start: 20130411, end: 20130412
  2. AFINITOR [Suspect]
     Dosage: 5 MG, DAILY
     Route: 048
     Dates: start: 20130418, end: 20130522
  3. AFINITOR [Suspect]
     Dosage: 5 MG, QOD
     Route: 048
     Dates: start: 20130624, end: 20130827
  4. AFINITOR [Suspect]
     Dosage: 5 MG, QOD
     Route: 048
     Dates: start: 20130904, end: 20131001
  5. AFINITOR [Suspect]
     Dosage: 5 MG, QOD
     Route: 048
     Dates: start: 20131009, end: 20131029
  6. MITOMYCIN C [Concomitant]
     Indication: PANCREATIC NEUROENDOCRINE TUMOUR
     Dates: start: 20110427, end: 20130213
  7. ADRIAMYCIN [Concomitant]
     Indication: PANCREATIC NEUROENDOCRINE TUMOUR
  8. BASEN//VOGLIBOSE [Concomitant]
     Dosage: 0.6 MG
     Route: 048
  9. LIPITOR [Concomitant]
     Dosage: 10 MG
     Route: 048
  10. TIMOPTOL [Concomitant]
     Route: 047
  11. GLACTIV [Concomitant]
     Route: 048
     Dates: start: 201306

REACTIONS (8)
  - Interstitial lung disease [Recovering/Resolving]
  - Rash [Unknown]
  - Pyrexia [Recovered/Resolved]
  - Dyspnoea [Unknown]
  - Diabetes mellitus [Not Recovered/Not Resolved]
  - Malignant neoplasm progression [Unknown]
  - Metastases to liver [Unknown]
  - C-reactive protein increased [Recovered/Resolved]
